FAERS Safety Report 8409706-0 (Version None)
Quarter: 2012Q2

REPORT INFORMATION
  Report Type: 
  Country: None (occurrence: None)
  Receive Date: 20120323
  Receipt Date: 20110204
  Transmission Date: 20120825
  Serious: Yes (Other)
  Sender: FDA-Public Use
  Company Number: 163-21880-11020938

PATIENT
  Age: 75 Year
  Sex: Male
  Weight: 72.5755 kg

DRUGS (12)
  1. LIPITOR [Concomitant]
  2. TEMAZEPAM [Concomitant]
  3. GARLIC [Concomitant]
  4. REVLIMID [Suspect]
     Indication: MULTIPLE MYELOMA
     Dosage: 10 MG, DAILY X 21 DAYS, PO : 15 MG, DAILY X 21 DAYS, PO : 5 MG, DAILY X 21 DAYS, PO
     Route: 048
     Dates: start: 20110201
  5. REVLIMID [Suspect]
     Indication: MULTIPLE MYELOMA
     Dosage: 10 MG, DAILY X 21 DAYS, PO : 15 MG, DAILY X 21 DAYS, PO : 5 MG, DAILY X 21 DAYS, PO
     Route: 048
     Dates: start: 20110101
  6. REVLIMID [Suspect]
     Indication: MULTIPLE MYELOMA
     Dosage: 10 MG, DAILY X 21 DAYS, PO : 15 MG, DAILY X 21 DAYS, PO : 5 MG, DAILY X 21 DAYS, PO
     Route: 048
     Dates: start: 20101201
  7. COREG [Concomitant]
  8. LISINOPRIL [Concomitant]
  9. SORINE (SOTALOL HYDROCHLORIDE) [Concomitant]
  10. OXYCODONE HCL [Concomitant]
  11. DEXAMETHASONE [Concomitant]
  12. POTASSIUM [Concomitant]

REACTIONS (1)
  - THROMBOSIS [None]
